FAERS Safety Report 15949304 (Version 1)
Quarter: 2019Q1

REPORT INFORMATION
  Report Type: Spontaneous
  Country: CO (occurrence: CO)
  Receive Date: 20190212
  Receipt Date: 20190212
  Transmission Date: 20190417
  Serious: Yes (Other)
  Sender: FDA-Public Use
  Company Number: CO-SUN PHARMACEUTICAL INDUSTRIES LTD-2019RR-198801

PATIENT
  Age: 82 Year
  Sex: Female

DRUGS (5)
  1. OMEPRAZOLE. [Suspect]
     Active Substance: OMEPRAZOLE
     Indication: GASTROOESOPHAGEAL REFLUX DISEASE
     Dosage: 20 MILLIGRAM, DAILY/ 1-0-0
     Route: 065
  2. LOSARTAN. [Concomitant]
     Active Substance: LOSARTAN
     Indication: HYPERTENSION
     Dosage: 50 MILLIGRAM, BID/ 1-0-1
     Route: 065
  3. AMLODIPINE [Concomitant]
     Active Substance: AMLODIPINE BESYLATE
     Indication: HYPERTENSION
     Dosage: 5 MILLIGRAM, DAILY/ 0-0-1
     Route: 065
  4. HYDROCHLOROTHIAZIDE. [Concomitant]
     Active Substance: HYDROCHLOROTHIAZIDE
     Indication: HYPERTENSION
     Dosage: 25 MILLIGRAM, DAILY/ 1-0-0
     Route: 065
  5. WARFARIN [Interacting]
     Active Substance: WARFARIN
     Indication: DEEP VEIN THROMBOSIS
     Dosage: 5 MILLIGRAM, DAILY/ 1-0-0
     Route: 065

REACTIONS (5)
  - International normalised ratio increased [Unknown]
  - Prothrombin time prolonged [Unknown]
  - Treatment noncompliance [Unknown]
  - Anticoagulation drug level above therapeutic [Unknown]
  - Drug interaction [Unknown]
